FAERS Safety Report 21595325 (Version 1)
Quarter: 2022Q4

REPORT INFORMATION
  Report Type: Report from Study
  Country: US (occurrence: US)
  Receive Date: 20221115
  Receipt Date: 20221115
  Transmission Date: 20230113
  Serious: No
  Sender: FDA-Public Use
  Company Number: US-ABBVIE-22K-163-4391217-00

PATIENT
  Sex: Male

DRUGS (2)
  1. HUMIRA [Suspect]
     Active Substance: ADALIMUMAB
     Indication: Colitis ulcerative
     Dosage: FORM STRENGTH 40 MILLIGRAM
     Route: 058
  2. HUMIRA [Suspect]
     Active Substance: ADALIMUMAB
     Dosage: FORM STRENGTH 40 MILLIGRAM
     Route: 058
     Dates: start: 20220107

REACTIONS (8)
  - Abnormal faeces [Unknown]
  - Injection site bruising [Unknown]
  - Infrequent bowel movements [Unknown]
  - Fatigue [Unknown]
  - Flatulence [Unknown]
  - Headache [Unknown]
  - Abdominal pain [Unknown]
  - Anaemia [Not Recovered/Not Resolved]
